FAERS Safety Report 15306607 (Version 5)
Quarter: 2018Q4

REPORT INFORMATION
  Report Type: Spontaneous
  Country: FR (occurrence: FR)
  Receive Date: 20180822
  Receipt Date: 20181009
  Transmission Date: 20190204
  Serious: Yes (Hospitalization)
  Sender: FDA-Public Use
  Company Number: FR-CELGENEUS-FRA-20180806432

PATIENT
  Age: 69 Year
  Sex: Male
  Weight: 63 kg

DRUGS (44)
  1. DEXAMETHASONE. [Concomitant]
     Active Substance: DEXAMETHASONE
     Indication: PLASMA CELL MYELOMA
     Route: 048
     Dates: start: 20160921
  2. FOLIC ACID. [Concomitant]
     Active Substance: FOLIC ACID
     Indication: ANAEMIA
     Route: 048
     Dates: start: 20170209
  3. EPREX [Concomitant]
     Active Substance: ERYTHROPOIETIN
     Indication: ANAEMIA
     Route: 058
     Dates: start: 20170209
  4. XATRAL [Concomitant]
     Active Substance: ALFUZOSIN
     Indication: PROSTATIC ADENOMA
     Route: 048
  5. LACTULOSE. [Concomitant]
     Active Substance: LACTULOSE
     Indication: SEIZURE
     Route: 065
  6. LYRICA [Concomitant]
     Active Substance: PREGABALIN
     Indication: PRODUCT USED FOR UNKNOWN INDICATION
     Route: 065
  7. ZELITREX [Concomitant]
     Active Substance: VALACYCLOVIR HYDROCHLORIDE
     Indication: INFECTION PROPHYLAXIS
     Route: 048
     Dates: start: 20160826
  8. LANSOPRAZOLE. [Concomitant]
     Active Substance: LANSOPRAZOLE
     Indication: ABDOMINAL PAIN UPPER
     Route: 048
     Dates: start: 20160818
  9. URBANYL [Concomitant]
     Active Substance: CLOBAZAM
     Indication: THERAPEUTIC PROCEDURE
  10. NACL [Concomitant]
     Active Substance: SODIUM CHLORIDE
     Route: 065
  11. POTASSIUM GLUCONATE SYRUP [Concomitant]
     Indication: PRODUCT USED FOR UNKNOWN INDICATION
     Route: 065
  12. BACLOFEN. [Concomitant]
     Active Substance: BACLOFEN
     Indication: PARAPLEGIA
     Route: 048
     Dates: start: 20170309
  13. KEPPRA [Concomitant]
     Active Substance: LEVETIRACETAM
     Indication: EPILEPSY
     Route: 065
     Dates: start: 201806
  14. URBANYL [Concomitant]
     Active Substance: CLOBAZAM
     Indication: EPILEPSY
     Dosage: 30 MILLIGRAM
     Route: 065
     Dates: start: 201806
  15. NACL [Concomitant]
     Active Substance: SODIUM CHLORIDE
     Indication: FLUID REPLACEMENT
     Route: 065
  16. CRYSTALLOIDS [Concomitant]
     Active Substance: UNSPECIFIED INGREDIENT
     Indication: FLUID REPLACEMENT
     Dosage: 0.5 MG/HOUR
     Route: 065
     Dates: end: 20180812
  17. LANZOR [Concomitant]
     Active Substance: LANSOPRAZOLE
     Indication: PRODUCT USED FOR UNKNOWN INDICATION
     Route: 065
  18. UVEDOSE [Concomitant]
     Active Substance: CHOLECALCIFEROL
     Indication: PROPHYLAXIS
     Dosage: 1 DOSE
     Route: 048
     Dates: start: 20160921
  19. BACTRIM [Concomitant]
     Active Substance: SULFAMETHOXAZOLE\TRIMETHOPRIM
     Indication: INFECTION PROPHYLAXIS
     Route: 048
     Dates: start: 20160226
  20. DUPHALAC [Concomitant]
     Active Substance: LACTULOSE
     Indication: INSOMNIA
     Route: 048
     Dates: start: 20160819
  21. REVLIMID [Suspect]
     Active Substance: LENALIDOMIDE
     Indication: PLASMA CELL MYELOMA
     Route: 048
     Dates: start: 20160921
  22. TRAMADOL. [Suspect]
     Active Substance: TRAMADOL
     Indication: PLASMA CELL MYELOMA
     Route: 048
     Dates: start: 201608
  23. WELLVONE [Concomitant]
     Active Substance: ATOVAQUONE
     Indication: INFECTION PROPHYLAXIS
     Route: 041
     Dates: start: 20160921
  24. DIFFU K [Concomitant]
     Active Substance: POTASSIUM CHLORIDE
     Indication: HYPOKALAEMIA
     Dosage: 2 DOSES
     Route: 048
     Dates: start: 20160921
  25. ACUPAN [Concomitant]
     Active Substance: NEFOPAM HYDROCHLORIDE
     Indication: PAIN
     Route: 048
     Dates: start: 201608
  26. PRIMPERAN [Concomitant]
     Active Substance: METOCLOPRAMIDE HYDROCHLORIDE
     Indication: PROPHYLAXIS OF NAUSEA AND VOMITING
     Route: 048
     Dates: start: 20160818
  27. PRODILANTIN [Concomitant]
     Active Substance: FOSPHENYTOIN SODIUM
     Indication: PRODUCT USED FOR UNKNOWN INDICATION
     Dosage: 0.5 MG/HOUR
     Route: 065
     Dates: end: 20180812
  28. MEROPENEM. [Concomitant]
     Active Substance: MEROPENEM
     Indication: PNEUMONIA
     Route: 065
     Dates: start: 20180818, end: 20180825
  29. DARATUMUMAB [Concomitant]
     Active Substance: DARATUMUMAB
     Indication: PLASMA CELL MYELOMA
     Route: 041
     Dates: start: 20160921, end: 20180724
  30. ZOMETA [Concomitant]
     Active Substance: ZOLEDRONIC ACID
     Indication: OSTEOPOROSIS PROPHYLAXIS
     Route: 041
     Dates: start: 20160921
  31. OXYCONTIN [Concomitant]
     Active Substance: OXYCODONE HYDROCHLORIDE
     Indication: PAIN PROPHYLAXIS
     Route: 048
     Dates: start: 20160921
  32. LASILIX [Concomitant]
     Active Substance: FUROSEMIDE
     Indication: URINARY TRACT INFECTION
     Route: 048
     Dates: start: 20170921
  33. FOLIC ACID. [Concomitant]
     Active Substance: FOLIC ACID
     Route: 048
  34. PARACETAMOL [Concomitant]
     Active Substance: ACETAMINOPHEN
     Indication: PRODUCT USED FOR UNKNOWN INDICATION
     Route: 065
  35. KEPPRA [Concomitant]
     Active Substance: LEVETIRACETAM
     Indication: THERAPEUTIC PROCEDURE
     Dosage: 3000 MILLIGRAM
     Route: 065
     Dates: start: 201806
  36. DEXTRO [Concomitant]
     Indication: PRODUCT USED FOR UNKNOWN INDICATION
     Dosage: 4 MMOL/L
     Route: 065
  37. NUTRISON ENERGY [Concomitant]
     Indication: PRODUCT USED FOR UNKNOWN INDICATION
     Route: 065
  38. DARATUMUMAB [Concomitant]
     Active Substance: DARATUMUMAB
     Dosage: UNSPECIFIED DOSE
     Route: 041
  39. INNOHEP [Concomitant]
     Active Substance: TINZAPARIN SODIUM
     Indication: ANAEMIA
     Route: 058
     Dates: start: 2013
  40. ZOPICLONE [Concomitant]
     Active Substance: ZOPICLONE
     Indication: INSOMNIA
     Route: 048
     Dates: start: 201708
  41. OXYGEN. [Concomitant]
     Active Substance: OXYGEN
     Indication: PRODUCT USED FOR UNKNOWN INDICATION
     Route: 065
  42. CALCIPARINE [Concomitant]
     Active Substance: HEPARIN CALCIUM
     Indication: PRODUCT USED FOR UNKNOWN INDICATION
     Route: 065
  43. PREGABALIN. [Concomitant]
     Active Substance: PREGABALIN
     Indication: PARAPLEGIA
     Route: 048
     Dates: start: 201608
  44. LANSOPRAZOLE. [Concomitant]
     Active Substance: LANSOPRAZOLE
     Indication: PROPHYLAXIS

REACTIONS (1)
  - Seizure [Recovered/Resolved]

NARRATIVE: CASE EVENT DATE: 20180809
